FAERS Safety Report 15504597 (Version 1)
Quarter: 2018Q4

REPORT INFORMATION
  Report Type: Spontaneous
  Country: US (occurrence: US)
  Receive Date: 20181016
  Receipt Date: 20181016
  Transmission Date: 20190205
  Serious: Yes (Other)
  Sender: FDA-Public Use
  Company Number: US-SA-2018SA283535

PATIENT
  Age: 75 Year

DRUGS (1)
  1. NICOTINE. [Suspect]
     Active Substance: NICOTINE
     Dosage: 14 MG
     Dates: start: 20180617, end: 20181002

REACTIONS (2)
  - Blood pressure increased [Unknown]
  - Angina bullosa haemorrhagica [Unknown]
